FAERS Safety Report 4602557-4 (Version None)
Quarter: 2005Q1

REPORT INFORMATION
  Report Type: 
  Country: None (occurrence: None)
  Receive Date: 20050307
  Receipt Date: 20050221
  Transmission Date: 20050727
  Serious: Yes (Life-Threatening, Hospitalization)
  Sender: FDA-Public Use
  Company Number: 2005034566

PATIENT
  Age: 94 Year
  Sex: Male

DRUGS (7)
  1. SULPERAZON        (SULBACTAM, CEFOPERAZONE) [Suspect]
     Indication: ILL-DEFINED DISORDER
     Dosage: 2 GRAM (INTRAVENOUS)
     Route: 042
     Dates: start: 20050216, end: 20050221
  2. BROMHEXINE HYDROCHLORIDE    (BROMHEXINE HYDROCHLORIDE) [Suspect]
     Indication: ILL-DEFINED DISORDER
     Dosage: ORAL
     Route: 048
     Dates: start: 20050205, end: 20050212
  3. MINOCYCLINE HYDROCHLORIDE [Suspect]
     Indication: ILL-DEFINED DISORDER
     Dosage: 200 MG, INTRAVENOUS
     Route: 042
     Dates: start: 20050207, end: 20050216
  4. METOCLOPRAMIDE [Suspect]
     Indication: ILL-DEFINED DISORDER
     Dosage: ORAL
     Route: 048
     Dates: start: 20050205, end: 20050208
  5. LACTEC (CALCIUM CHLORIDE ANHYDROUS, POTASSIUM CHLORIDE, SODIUM CHLORID [Suspect]
     Indication: ILL-DEFINED DISORDER
     Dosage: INTRAVENOUS
     Route: 042
     Dates: start: 20050205, end: 20050217
  6. TEICOPLANIN          (TEICOPLANIN) [Suspect]
     Indication: ILL-DEFINED DISORDER
     Dosage: INTRAVENOUS
     Route: 042
     Dates: start: 20050209, end: 20050214
  7. AMINO ACIDS/ELECTROLYTES /GLUCOSE/VITAMINS (AMINO ACIDS NOS, ELECTROLY [Concomitant]

REACTIONS (4)
  - ALANINE AMINOTRANSFERASE INCREASED [None]
  - ASPARTATE AMINOTRANSFERASE INCREASED [None]
  - HEPATIC FUNCTION ABNORMAL [None]
  - HYPERBILIRUBINAEMIA [None]
